FAERS Safety Report 23149831 (Version 1)
Quarter: 2023Q4

REPORT INFORMATION
  Report Type: Spontaneous
  Country: US (occurrence: None)
  Receive Date: 20231104
  Receipt Date: 20231104
  Transmission Date: 20240110
  Serious: Yes (Other)
  Sender: FDA-Public Use
  Company Number: None

PATIENT
  Age: 45 Year
  Sex: Female
  Weight: 77.4 kg

DRUGS (20)
  1. POLYETHYLENE GLYCOL 3350 [Suspect]
     Active Substance: POLYETHYLENE GLYCOL 3350
     Indication: Constipation
     Dosage: OTHER QUANTITY : 1 BOTTLE;?OTHER FREQUENCY : BOWEL CLEAN OUT;?
     Route: 048
     Dates: start: 20231104, end: 20231104
  2. GABAPENTIN [Concomitant]
     Active Substance: GABAPENTIN
  3. UBRELVY [Concomitant]
     Active Substance: UBROGEPANT
  4. emagality inj [Concomitant]
  5. METOPROLOL [Concomitant]
     Active Substance: METOPROLOL
  6. PROTONIX [Concomitant]
     Active Substance: PANTOPRAZOLE SODIUM
  7. famantidine [Concomitant]
  8. asa81 [Concomitant]
  9. DULOXETINE [Concomitant]
     Active Substance: DULOXETINE
  10. METHOCARBAMOL [Concomitant]
     Active Substance: METHOCARBAMOL
  11. XYZAL [Concomitant]
     Active Substance: LEVOCETIRIZINE DIHYDROCHLORIDE
  12. ZYRTEC [Concomitant]
     Active Substance: CETIRIZINE HYDROCHLORIDE
  13. EFFEXOR XR [Concomitant]
     Active Substance: VENLAFAXINE HYDROCHLORIDE
  14. MAGNESIUM [Concomitant]
     Active Substance: MAGNESIUM
  15. VITAMIN B12 [Concomitant]
     Active Substance: CYANOCOBALAMIN
  16. VITAMIN D [Concomitant]
     Active Substance: VITAMIN D NOS
  17. fiber capsules [Concomitant]
  18. BIOTIN [Concomitant]
     Active Substance: BIOTIN
  19. lions mane capsules [Concomitant]
  20. women^s MVT [Concomitant]

REACTIONS (2)
  - Abdominal pain upper [None]
  - Dyspepsia [None]

NARRATIVE: CASE EVENT DATE: 20231104
